FAERS Safety Report 7138260 (Version 3)
Quarter: 2012Q4

REPORT INFORMATION
  Report Type: 
  Country: US (occurrence: US)
  Receive Date: 20091002
  Receipt Date: 20120906
  Transmission Date: 20130627
  Serious: Yes (Other)
  Sender: FDA-Public Use
  Company Number: US-ASTRAZENECA-2009UW07763

PATIENT
  Age: 68 Year
  Sex: Female

DRUGS (13)
  1. ARIMIDEX [Suspect]
     Indication: BREAST CANCER FEMALE
     Route: 048
     Dates: start: 200810
  2. ARIMIDEX [Suspect]
     Indication: BREAST CANCER FEMALE
     Dosage: MAY HAVE TAKEN TWO
     Route: 048
  3. SYMBICORT PMDI [Suspect]
     Indication: CHRONIC OBSTRUCTIVE PULMONARY DISEASE
     Dosage: TWO PUFFS IN THE MORNING AND AT NIGHT
     Route: 055
  4. NEXIUM [Suspect]
     Indication: OESOPHAGEAL DISORDER
     Route: 048
  5. RADIATION THERAPY [Concomitant]
  6. STEROIDS [Concomitant]
  7. PREDNISONE [Concomitant]
     Indication: IMMUNOSUPPRESSANT DRUG THERAPY
  8. POTASSIUM CL [Concomitant]
     Indication: MINERAL SUPPLEMENTATION
  9. ATROVENT [Concomitant]
     Indication: CHRONIC OBSTRUCTIVE PULMONARY DISEASE
     Dosage: TWO PUFFS TWO TIMES A DAY
  10. SPIRIVA [Concomitant]
     Indication: CHRONIC OBSTRUCTIVE PULMONARY DISEASE
     Dosage: ONE PUFF EVERY MORNING
  11. LORAZEPAM [Concomitant]
     Indication: ANXIETY
     Dosage: 1 MG UPTO THREE TO FOUR TIMES A DAY
  12. ENDOCET [Concomitant]
     Indication: PAIN
     Dosage: 7.5/325 EVERY FOUR HOURS AND AS NEEDED
  13. PERI-COLACE [Concomitant]
     Indication: CONSTIPATION
     Dosage: VIA DISTAL STOMA DAILY

REACTIONS (7)
  - Haemorrhage [Unknown]
  - Rectal haemorrhage [Unknown]
  - Colitis ulcerative [Unknown]
  - Tremor [Unknown]
  - Fatigue [Unknown]
  - Decreased appetite [Unknown]
  - Inappropriate schedule of drug administration [Unknown]
